FAERS Safety Report 22101864 (Version 1)
Quarter: 2023Q1

REPORT INFORMATION
  Report Type: Spontaneous
  Country: HU (occurrence: HU)
  Receive Date: 20230316
  Receipt Date: 20230316
  Transmission Date: 20230418
  Serious: Yes (Other)
  Sender: FDA-Public Use
  Company Number: HU-002147023-NVSC2023HU056252

PATIENT
  Sex: Male

DRUGS (5)
  1. ELTROMBOPAG OLAMINE [Suspect]
     Active Substance: ELTROMBOPAG OLAMINE
     Indication: Immune thrombocytopenia
     Dosage: 50 MG
     Route: 065
  2. ELTROMBOPAG OLAMINE [Suspect]
     Active Substance: ELTROMBOPAG OLAMINE
     Dosage: 75 MG
     Route: 065
     Dates: start: 2021
  3. ELTROMBOPAG OLAMINE [Suspect]
     Active Substance: ELTROMBOPAG OLAMINE
     Dosage: 75 MG (START DATE: UNKNOWN DATE IN 2023)
     Route: 065
  4. ZYPADHERA [Concomitant]
     Active Substance: OLANZAPINE PAMOATE
     Indication: Schizophrenia
     Dosage: UNK
     Route: 065
  5. ROMIPLOSTIM [Concomitant]
     Active Substance: ROMIPLOSTIM
     Indication: Immune thrombocytopenia
     Dosage: UNK (STOP DATE: UNKNOWN DATE IN 2023)
     Route: 058

REACTIONS (8)
  - Platelet count decreased [Unknown]
  - Pain in extremity [Recovering/Resolving]
  - Erythema [Unknown]
  - Microangiopathy [Unknown]
  - Antiphospholipid antibodies positive [Unknown]
  - Insomnia [Unknown]
  - Bone marrow reticulin fibrosis [Unknown]
  - Therapeutic response decreased [Unknown]

NARRATIVE: CASE EVENT DATE: 20210301
